FAERS Safety Report 6590060-4 (Version None)
Quarter: 2010Q1

REPORT INFORMATION
  Report Type: 
  Country: None (occurrence: None)
  Receive Date: 20100219
  Receipt Date: 20100212
  Transmission Date: 20100710
  Serious: No
  Sender: FDA-Public Use
  Company Number: B0633020A

PATIENT
  Sex: Male

DRUGS (1)
  1. NIQUITIN MINI LOZENGES 1.5MG [Suspect]
     Indication: SMOKING CESSATION THERAPY
     Dosage: 1.5MG VARIABLE DOSE
     Route: 048
     Dates: start: 20100201

REACTIONS (3)
  - APTYALISM [None]
  - COUGH [None]
  - DYSPNOEA [None]
